FAERS Safety Report 20850797 (Version 3)
Quarter: 2022Q2

REPORT INFORMATION
  Report Type: Spontaneous
  Country: US (occurrence: US)
  Receive Date: 20220519
  Receipt Date: 20220526
  Transmission Date: 20220721
  Serious: No
  Sender: FDA-Public Use
  Company Number: US-PFIZER INC-202200671760

PATIENT
  Age: 61 Year
  Sex: Female

DRUGS (1)
  1. IBRANCE [Suspect]
     Active Substance: PALBOCICLIB
     Dosage: 125 MG
     Dates: start: 20220426

REACTIONS (14)
  - Constipation [Not Recovered/Not Resolved]
  - Vomiting [Unknown]
  - Retching [Unknown]
  - Diarrhoea [Unknown]
  - Rash [Unknown]
  - Dysgeusia [Unknown]
  - Food intolerance [Unknown]
  - Pain in extremity [Unknown]
  - Insomnia [Unknown]
  - Oropharyngeal discomfort [Unknown]
  - Bedridden [Unknown]
  - Appetite disorder [Not Recovered/Not Resolved]
  - Nausea [Not Recovered/Not Resolved]
  - Blood test abnormal [Unknown]
